FAERS Safety Report 7932766-8 (Version None)
Quarter: 2011Q4

REPORT INFORMATION
  Report Type: 
  Country: None (occurrence: None)
  Receive Date: 20111122
  Receipt Date: 20111116
  Transmission Date: 20120403
  Serious: Yes (Disabling, Other)
  Sender: FDA-Public Use
  Company Number: FR-ABBOTT-11P-056-0874710-00

PATIENT
  Sex: Female

DRUGS (9)
  1. HUMIRA [Suspect]
     Indication: RHEUMATOID ARTHRITIS
     Route: 058
     Dates: start: 20080615, end: 20091001
  2. HUMIRA [Suspect]
     Dates: start: 20110901
  3. PREDNISONE TAB [Concomitant]
     Indication: PRODUCT USED FOR UNKNOWN INDICATION
  4. ACID FOLIC [Concomitant]
     Indication: PRODUCT USED FOR UNKNOWN INDICATION
  5. DICLOFENAC SODIUM [Concomitant]
     Indication: PRODUCT USED FOR UNKNOWN INDICATION
  6. ACETAMINOPHEN [Concomitant]
     Indication: PRODUCT USED FOR UNKNOWN INDICATION
  7. HUMIRA [Suspect]
     Route: 058
     Dates: start: 20100201, end: 20110501
  8. METHOTREXATE [Concomitant]
     Indication: RHEUMATOID ARTHRITIS
     Dates: end: 20091001
  9. METHOTREXATE [Concomitant]
     Dates: start: 20091101

REACTIONS (11)
  - AXONAL NEUROPATHY [None]
  - HYPOAESTHESIA [None]
  - MUSCLE SPASMS [None]
  - ARTHRALGIA [None]
  - SENSORIMOTOR DISORDER [None]
  - PERIPHERAL SENSORIMOTOR NEUROPATHY [None]
  - NAUSEA [None]
  - RADICULAR CYST [None]
  - HEADACHE [None]
  - POLYNEUROPATHY IDIOPATHIC PROGRESSIVE [None]
  - PAIN IN EXTREMITY [None]
